FAERS Safety Report 6978772-1 (Version None)
Quarter: 2010Q3

REPORT INFORMATION
  Report Type: 
  Country: None (occurrence: None)
  Receive Date: 20100913
  Receipt Date: 20100902
  Transmission Date: 20110219
  Serious: Yes (Hospitalization)
  Sender: FDA-Public Use
  Company Number: FR-ASTRAZENECA-2010SE35261

PATIENT
  Age: 52 Year
  Sex: Female

DRUGS (14)
  1. CRESTOR [Suspect]
     Indication: DYSLIPIDAEMIA
     Route: 048
     Dates: end: 20100601
  2. CRESTOR [Interacting]
     Route: 048
     Dates: start: 20100701, end: 20100714
  3. COLCHIMAX [Interacting]
     Route: 048
     Dates: start: 19870101, end: 20100714
  4. COLCHIMAX [Interacting]
     Route: 048
     Dates: start: 20100804
  5. COOLMETEC [Concomitant]
     Route: 048
  6. XANAX [Concomitant]
     Route: 048
  7. TRIMEPRAZINE TAB [Concomitant]
     Route: 048
  8. AERIUS [Concomitant]
     Route: 048
  9. STILNOX [Concomitant]
     Route: 048
     Dates: end: 20100712
  10. GLUCOPHAGE [Concomitant]
     Route: 048
  11. JANUVIA [Concomitant]
     Route: 048
  12. EFFEXOR [Concomitant]
     Route: 048
  13. ZANIDIP [Concomitant]
     Route: 048
  14. KARDEGIC [Concomitant]
     Route: 048

REACTIONS (4)
  - DRUG INTERACTION [None]
  - PANCYTOPENIA [None]
  - RENAL FAILURE ACUTE [None]
  - RHABDOMYOLYSIS [None]
